FAERS Safety Report 9331260 (Version 3)
Quarter: 2013Q2

REPORT INFORMATION
  Report Type: Spontaneous
  Country: JP (occurrence: JP)
  Receive Date: 20130605
  Receipt Date: 20130628
  Transmission Date: 20140414
  Serious: Yes (Hospitalization, Other)
  Sender: FDA-Public Use
  Company Number: JP-PFIZER INC-2013158774

PATIENT
  Age: 83 Year
  Sex: Female

DRUGS (3)
  1. CADUET [Suspect]
     Indication: HYPERTENSION
     Dosage: UNK
     Route: 048
     Dates: start: 20130329, end: 20130426
  2. CADUET [Suspect]
     Indication: HYPERCHOLESTEROLAEMIA
  3. ALLELOCK [Concomitant]
     Dosage: UNK
     Route: 048
     Dates: start: 20130329, end: 20130426

REACTIONS (2)
  - Hepatic function abnormal [Recovered/Resolved]
  - Cholecystitis acute [Recovered/Resolved]
